FAERS Safety Report 10384900 (Version 1)
Quarter: 2014Q3

REPORT INFORMATION
  Report Type: Spontaneous
  Country: US (occurrence: None)
  Receive Date: 20140813
  Receipt Date: 20140813
  Transmission Date: 20150326
  Serious: Yes (Disabling)
  Sender: FDA-Public Use
  Company Number: None

PATIENT
  Age: 26 Year
  Sex: Male
  Weight: 65.77 kg

DRUGS (1)
  1. PROPECIA [Suspect]
     Active Substance: FINASTERIDE
     Indication: ALOPECIA
     Route: 048
     Dates: start: 20090301, end: 20121129

REACTIONS (9)
  - Anxiety [None]
  - Depression [None]
  - Weight decreased [None]
  - Hypogonadism [None]
  - Vision blurred [None]
  - Feeling abnormal [None]
  - Erectile dysfunction [None]
  - Cognitive disorder [None]
  - Muscular weakness [None]

NARRATIVE: CASE EVENT DATE: 20121201
